FAERS Safety Report 16903770 (Version 3)
Quarter: 2020Q1

REPORT INFORMATION
  Report Type: Spontaneous
  Country: US (occurrence: US)
  Receive Date: 20191010
  Receipt Date: 20200110
  Transmission Date: 20200409
  Serious: No
  Sender: FDA-Public Use
  Company Number: US-PFIZER INC-2019438677

PATIENT
  Age: 80 Year
  Sex: Female
  Weight: 48.53 kg

DRUGS (1)
  1. ADVIL LIQUI-GELS [Suspect]
     Active Substance: IBUPROFEN
     Indication: ARTHRITIS
     Dosage: 400 MG, 1X/DAY (200 MG TWO CAPSULES BY MOUTH ONCE A DAY)
     Route: 048
     Dates: start: 2019

REACTIONS (3)
  - Pain [Unknown]
  - Product size issue [Unknown]
  - Poor quality product administered [Unknown]

NARRATIVE: CASE EVENT DATE: 2019
